FAERS Safety Report 4568109-X (Version None)
Quarter: 2005Q1

REPORT INFORMATION
  Report Type: 
  Country: None (occurrence: None)
  Receive Date: 20050131
  Receipt Date: 20050117
  Transmission Date: 20050727
  Serious: Yes (Other)
  Sender: FDA-Public Use
  Company Number: DE-2004-033675

PATIENT
  Age: 31 Year
  Sex: Female

DRUGS (2)
  1. MIRENA [Suspect]
     Indication: CONTRACEPTION
     Dosage: 20 UG/DAY, CONT, INTRA-UTERINE
     Route: 015
     Dates: start: 20040910, end: 20040911
  2. MEAVERIN ^AVENTIS PHARMA^ (MEPIVACAINE HYDROCHLORIDE) GEL [Suspect]
     Indication: ANALGESIC EFFECT
     Dosage: 5 ML, 1 DOSE, INTRACERVICAL
     Route: 019
     Dates: start: 20040910

REACTIONS (3)
  - ERYTHEMA [None]
  - LEUKOCYTOCLASTIC VASCULITIS [None]
  - PRURITUS [None]
